FAERS Safety Report 17265096 (Version 1)
Quarter: 2020Q1

REPORT INFORMATION
  Report Type: Report from Study
  Country: None (occurrence: CO)
  Receive Date: 20200113
  Receipt Date: 20200113
  Transmission Date: 20200409
  Serious: Yes (Other)
  Sender: FDA-Public Use
  Company Number: CO-ABBVIE-19K-036-2785866-00

PATIENT
  Age: 52 Year
  Sex: Female
  Weight: 70 kg

DRUGS (5)
  1. HUMIRA [Suspect]
     Active Substance: ADALIMUMAB
     Indication: ANKYLOSING SPONDYLITIS
     Route: 058
     Dates: start: 20121227
  2. PREGABALIN. [Concomitant]
     Active Substance: PREGABALIN
     Indication: PRODUCT USED FOR UNKNOWN INDICATION
  3. FLUOXETINE [Concomitant]
     Active Substance: FLUOXETINE HYDROCHLORIDE
     Indication: PRODUCT USED FOR UNKNOWN INDICATION
  4. HUMIRA [Suspect]
     Active Substance: ADALIMUMAB
     Indication: ANKYLOSING SPONDYLITIS
     Route: 058
  5. TRAMADOL. [Suspect]
     Active Substance: TRAMADOL
     Indication: PRODUCT USED FOR UNKNOWN INDICATION
     Route: 065

REACTIONS (18)
  - Anorectal discomfort [Recovering/Resolving]
  - Gingival pain [Recovering/Resolving]
  - Oral discomfort [Recovering/Resolving]
  - Herpes zoster [Recovering/Resolving]
  - Haemoptysis [Recovering/Resolving]
  - Dysphonia [Recovering/Resolving]
  - Oral mucosal blistering [Recovering/Resolving]
  - Tinea infection [Unknown]
  - Groin pain [Recovering/Resolving]
  - Influenza [Recovering/Resolving]
  - Ear pruritus [Not Recovered/Not Resolved]
  - Blister [Recovering/Resolving]
  - Sinusitis [Not Recovered/Not Resolved]
  - Somnolence [Recovering/Resolving]
  - Noninfective gingivitis [Unknown]
  - Sinusitis [Recovered/Resolved]
  - Malaise [Recovering/Resolving]
  - Arthritis [Recovering/Resolving]

NARRATIVE: CASE EVENT DATE: 201905
